FAERS Safety Report 11153296 (Version 1)
Quarter: 2015Q2

REPORT INFORMATION
  Report Type: Spontaneous
  Country: US (occurrence: US)
  Receive Date: 20150601
  Receipt Date: 20150601
  Transmission Date: 20150821
  Serious: Yes (Hospitalization, Other)
  Sender: FDA-Public Use
  Company Number: PHHY2015US063421

PATIENT
  Age: 47 Year
  Sex: Male

DRUGS (2)
  1. CURITAZ [Suspect]
     Active Substance: PIPERACILLIN SODIUM\TAZOBACTAM SODIUM
     Indication: SEPSIS
     Route: 065
  2. VANCOMYCIN [Concomitant]
     Active Substance: VANCOMYCIN
     Indication: SEPSIS
     Route: 065

REACTIONS (7)
  - Cardiac arrest [Unknown]
  - Histiocytosis haematophagic [Unknown]
  - Renal failure [Unknown]
  - Haemolysis [Unknown]
  - Haemoglobinuria [Recovering/Resolving]
  - Brain injury [Unknown]
  - Anaemia [Recovering/Resolving]
